FAERS Safety Report 16867885 (Version 1)
Quarter: 2019Q3

REPORT INFORMATION
  Report Type: Spontaneous
  Country: US (occurrence: US)
  Receive Date: 20190930
  Receipt Date: 20190930
  Transmission Date: 20191005
  Serious: Yes (Hospitalization, Other)
  Sender: FDA-Public Use
  Company Number: US-GLAXOSMITHKLINE-US2019GSK173182

PATIENT
  Age: 45 Year
  Sex: Male

DRUGS (1)
  1. TRIAMTERENE AND HYDROCHLOROTHIAZIDE [Suspect]
     Active Substance: HYDROCHLOROTHIAZIDE\TRIAMTERENE
     Indication: HYPERTENSION
     Dosage: UNK

REACTIONS (7)
  - Hypocalcaemia [Unknown]
  - Hyperparathyroidism [Unknown]
  - Hypokalaemia [Unknown]
  - Arthralgia [Unknown]
  - Malaise [Unknown]
  - Hypomagnesaemia [Unknown]
  - Myalgia [Unknown]
